FAERS Safety Report 4468045-3 (Version None)
Quarter: 2004Q4

REPORT INFORMATION
  Report Type: 
  Country: None (occurrence: None)
  Receive Date: 20041004
  Receipt Date: 20040920
  Transmission Date: 20050328
  Serious: Yes (Death)
  Sender: FDA-Public Use
  Company Number: 2004069046

PATIENT
  Age: 80 Year
  Sex: Male

DRUGS (11)
  1. NEURONTIN [Suspect]
     Indication: NEUROPATHIC PAIN
  2. NICARDIPINE HCL [Concomitant]
  3. GLIBENCLAMIDE (GLIBENCLAMIDE0 [Concomitant]
  4. DIPYRIDAMOLE [Concomitant]
  5. ALLOPURINOL [Concomitant]
  6. BLOPRESS PLUS (CANDESARTAN CILEXETIL, HYDROCHLOROTHIAZIDE) [Concomitant]
  7. VASERETIC [Concomitant]
  8. PRAVASTATIN SODIUM [Concomitant]
  9. METFORMIN HCL [Concomitant]
  10. ACARBOSE (ACARBOSE) [Concomitant]
  11. NITROGLYCERIN [Concomitant]

REACTIONS (3)
  - DRUG INEFFECTIVE [None]
  - ERECTILE DYSFUNCTION [None]
  - MYOCARDIAL INFARCTION [None]
